FAERS Safety Report 10070158 (Version 1)
Quarter: 2014Q2

REPORT INFORMATION
  Report Type: Spontaneous
  Country: ES (occurrence: None)
  Receive Date: 20140408
  Receipt Date: 20140408
  Transmission Date: 20141212
  Serious: Yes (Hospitalization)
  Sender: FDA-Public Use
  Company Number: 2273207

PATIENT
  Age: 67 Year
  Sex: Male

DRUGS (9)
  1. GEMCITABINE HYDROCHLORIDE [Suspect]
     Indication: METASTATIC CARCINOMA OF THE BLADDER
     Route: 041
     Dates: start: 20130314, end: 20130705
  2. ERIBULIN [Suspect]
     Indication: METASTATIC CARCINOMA OF THE BLADDER
     Route: 041
     Dates: start: 20130314, end: 20131205
  3. CISPLATIN [Suspect]
     Indication: METASTATIC CARCINOMA OF THE BLADDER
     Route: 041
     Dates: start: 20130314, end: 20130629
  4. OMEPRAZOLE [Concomitant]
  5. MIRTAZAPINA [Concomitant]
  6. ESCITALOPRAM [Concomitant]
  7. AUGEMENTIN /00756801/ [Concomitant]
  8. AMOXICILLIN+CLAVULANIC ACID [Concomitant]
  9. ALL OTHER THERAPEUTIC PRODUCTS [Concomitant]

REACTIONS (3)
  - Bronchitis [None]
  - Headache [None]
  - Presyncope [None]
